FAERS Safety Report 6911249-8 (Version None)
Quarter: 2010Q3

REPORT INFORMATION
  Report Type: 
  Country: None (occurrence: None)
  Receive Date: 20100719
  Receipt Date: 20090903
  Transmission Date: 20110219
  Serious: Yes (Hospitalization, Other)
  Sender: FDA-Public Use
  Company Number: US-WYE-H10885109

PATIENT
  Age: 46 Year
  Sex: Male
  Weight: 74.91 kg

DRUGS (1)
  1. ADVIL [Suspect]
     Indication: HEADACHE
     Dosage: 2 TABLETS X 1, ORAL
     Route: 048
     Dates: start: 20090808, end: 20090808

REACTIONS (1)
  - ANAPHYLACTIC REACTION [None]
